APPROVED DRUG PRODUCT: FML
Active Ingredient: FLUOROMETHOLONE
Strength: 0.1%
Dosage Form/Route: SUSPENSION/DROPS;OPHTHALMIC
Application: N016851 | Product #002 | TE Code: AB
Applicant: ABBVIE INC
Approved: Jul 28, 1982 | RLD: Yes | RS: Yes | Type: RX